FAERS Safety Report 8803443 (Version 4)
Quarter: 2013Q1

REPORT INFORMATION
  Report Type: Spontaneous
  Country: US (occurrence: US)
  Receive Date: 20120924
  Receipt Date: 20130225
  Transmission Date: 20140127
  Serious: Yes (Hospitalization, Other)
  Sender: FDA-Public Use
  Company Number: US-009507513-1203USA00773

PATIENT
  Sex: Female
  Weight: 63.49 kg

DRUGS (3)
  1. FOSAMAX [Suspect]
     Indication: OSTEOPOROSIS
     Dosage: 70 MG, QW
     Route: 048
     Dates: start: 199710, end: 201008
  2. FOSAMAX [Suspect]
     Route: 048
  3. ALENDRONATE SODIUM [Suspect]
     Dosage: 70 MG, QW
     Route: 048
     Dates: start: 20080326

REACTIONS (14)
  - Femur fracture [Unknown]
  - Femur fracture [Unknown]
  - Open reduction of fracture [Unknown]
  - Open reduction of fracture [Unknown]
  - Cholecystectomy [Unknown]
  - Low turnover osteopathy [Unknown]
  - Hypercholesterolaemia [Unknown]
  - Metrorrhagia [Unknown]
  - Fall [Unknown]
  - Hypertension [Unknown]
  - Anaesthetic complication [Unknown]
  - Rib fracture [Unknown]
  - Anxiety [Unknown]
  - Depression [Unknown]
